APPROVED DRUG PRODUCT: INNOPRAN XL
Active Ingredient: PROPRANOLOL HYDROCHLORIDE
Strength: 120MG
Dosage Form/Route: CAPSULE, EXTENDED RELEASE;ORAL
Application: N021438 | Product #002 | TE Code: BX
Applicant: ANI PHARMACEUTICALS INC
Approved: Mar 12, 2003 | RLD: Yes | RS: Yes | Type: RX